FAERS Safety Report 8610569-9 (Version None)
Quarter: 2012Q3

REPORT INFORMATION
  Report Type: 
  Country: None (occurrence: None)
  Receive Date: 20120423
  Receipt Date: 20100601
  Transmission Date: 20120928
  Serious: Yes (Other)
  Sender: FDA-Public Use
  Company Number: PHHY2010US25238

PATIENT
  Sex: Female

DRUGS (2)
  1. TAMOXIFEN CITRATE [Concomitant]
  2. FEMARA [Suspect]
     Dosage: 2.5 MG, QD, ORAL
     Route: 048
     Dates: start: 20080819, end: 20100414

REACTIONS (1)
  - BREAST CANCER RECURRENT [None]
